FAERS Safety Report 16525160 (Version 2)
Quarter: 2019Q3

REPORT INFORMATION
  Report Type: Spontaneous
  Country: US (occurrence: US)
  Receive Date: 20190703
  Receipt Date: 20190708
  Transmission Date: 20191004
  Serious: No
  Sender: FDA-Public Use
  Company Number: US-GALDERMA-US19030208

PATIENT
  Age: 48 Year
  Sex: Female

DRUGS (2)
  1. ORACEA [Suspect]
     Active Substance: DOXYCYCLINE
     Indication: ROSACEA
     Route: 048
     Dates: start: 20190426
  2. SOOLANTRA [Suspect]
     Active Substance: IVERMECTIN
     Indication: ROSACEA
     Dosage: 1%
     Route: 061
     Dates: start: 20190426

REACTIONS (2)
  - Rash pustular [Not Recovered/Not Resolved]
  - Rosacea [Not Recovered/Not Resolved]

NARRATIVE: CASE EVENT DATE: 20190508
